FAERS Safety Report 19623616 (Version 1)
Quarter: 2021Q3

REPORT INFORMATION
  Report Type: Spontaneous
  Country: US (occurrence: US)
  Receive Date: 20210729
  Receipt Date: 20210729
  Transmission Date: 20211014
  Serious: Yes (Disabling)
  Sender: FDA-Public Use
  Company Number: US-TEVA-2021-US-1937973

PATIENT
  Age: 56 Year
  Sex: Female

DRUGS (4)
  1. TRIAMTERENE. [Concomitant]
     Active Substance: TRIAMTERENE
     Dates: start: 2010
  2. CYTOXAN [Concomitant]
     Active Substance: CYCLOPHOSPHAMIDE
     Indication: BREAST CANCER FEMALE
     Dosage: NUMBER OF CYCLE ? 04, FREQUENCY ? EVERY THREE WEEKS
     Dates: start: 20140622, end: 20140902
  3. DOCETAXEL. [Suspect]
     Active Substance: DOCETAXEL
     Indication: BREAST CANCER FEMALE
     Dosage: NUMBER OF CYCLE ? 04, FREQUENCY ? EVERY THREE WEEKS
     Route: 065
     Dates: start: 20140622, end: 20140902
  4. ATENOLOL. [Concomitant]
     Active Substance: ATENOLOL
     Dates: start: 20100101

REACTIONS (2)
  - Alopecia areata [Not Recovered/Not Resolved]
  - Madarosis [Not Recovered/Not Resolved]

NARRATIVE: CASE EVENT DATE: 201406
